FAERS Safety Report 7864480-1 (Version None)
Quarter: 2011Q4

REPORT INFORMATION
  Report Type: 
  Country: None (occurrence: None)
  Receive Date: 20111028
  Receipt Date: 20111021
  Transmission Date: 20120403
  Serious: No
  Sender: FDA-Public Use
  Company Number: US-B.I. PHARMACEUTICALS,INC./RIDGEFIELD-2011-BP-24725BP

PATIENT
  Sex: Female

DRUGS (9)
  1. TERAZOSIN HCL [Concomitant]
     Indication: HYPERTENSION
     Dosage: 10 MG
     Route: 048
     Dates: start: 20030101
  2. ENALAPRIL MALEATE [Concomitant]
     Indication: HYPERTENSION
     Dosage: 40 MG
     Route: 048
     Dates: start: 20070101
  3. AMARYL [Concomitant]
     Indication: DIABETES MELLITUS
     Dosage: 8 MG
     Route: 048
     Dates: start: 20080101
  4. LASIX [Concomitant]
     Indication: CARDIAC FAILURE CONGESTIVE
     Dosage: 20 MG
     Route: 048
     Dates: start: 20030101
  5. CYMBALTA [Concomitant]
     Indication: NEUROPATHY PERIPHERAL
     Dosage: 60 MG
     Route: 048
     Dates: start: 20090101
  6. LANTUS [Concomitant]
     Indication: DIABETES MELLITUS
     Dosage: 15 U
     Route: 058
     Dates: start: 20110701
  7. VICODIN [Concomitant]
     Indication: ARTHRITIS
     Route: 048
     Dates: start: 20090101
  8. METOPROLOL TARTRATE [Concomitant]
     Indication: HYPERTENSION
     Dosage: 100 MG
     Route: 048
     Dates: start: 19760101
  9. PRADAXA [Suspect]
     Indication: ATRIAL FIBRILLATION
     Dosage: 300 MG
     Route: 048
     Dates: start: 20110401, end: 20111013

REACTIONS (5)
  - FATIGUE [None]
  - CONTUSION [None]
  - EPISTAXIS [None]
  - HAEMORRHOIDAL HAEMORRHAGE [None]
  - PAIN IN JAW [None]
